FAERS Safety Report 9337097 (Version 1)
Quarter: 2013Q2

REPORT INFORMATION
  Report Type: Spontaneous
  Country: US (occurrence: US)
  Receive Date: 20130607
  Receipt Date: 20130607
  Transmission Date: 20140414
  Serious: Yes (Hospitalization, Other)
  Sender: FDA-Public Use
  Company Number: US-MERCK-1306USA002723

PATIENT
  Sex: Male

DRUGS (2)
  1. JANUMET [Suspect]
     Route: 048
  2. GLIMEPIRIDE [Suspect]

REACTIONS (2)
  - Pancreatitis acute [Unknown]
  - Blood glucose increased [Unknown]
